FAERS Safety Report 22062489 (Version 2)
Quarter: 2023Q1

REPORT INFORMATION
  Report Type: Report from Study
  Country: TR (occurrence: TR)
  Receive Date: 20230305
  Receipt Date: 20230323
  Transmission Date: 20230417
  Serious: Yes (Other)
  Sender: FDA-Public Use
  Company Number: TR-ABBVIE-4325182

PATIENT
  Age: 70 Year
  Sex: Male
  Weight: 90 kg

DRUGS (5)
  1. CARBIDOPA\LEVODOPA [Suspect]
     Active Substance: CARBIDOPA\LEVODOPA
     Indication: Parkinson^s disease
     Dosage: MORNING DOSE (ML): 6.00 CONTINUOUS DOSE (ML): 4.00 EXTRA DOSE (ML): 2.00
     Route: 050
     Dates: start: 20130625, end: 20230228
  2. CARBIDOPA\LEVODOPA [Suspect]
     Active Substance: CARBIDOPA\LEVODOPA
  3. PK-MERZ [Concomitant]
     Active Substance: AMANTADINE
     Indication: Parkinson^s disease
     Dosage: 200 MILLIGRAM, ?FORM STRENGTH 100 MILLIGRAM
     Route: 048
     Dates: start: 20150401
  4. GYREX [Concomitant]
     Indication: Hallucination
     Dosage: FORM STRENGTH 25 MILLIGRAM
     Route: 048
     Dates: start: 20221013
  5. BENSERAZIDE HYDROCHLORIDE\LEVODOPA [Concomitant]
     Active Substance: BENSERAZIDE HYDROCHLORIDE\LEVODOPA
     Indication: Parkinson^s disease
     Dosage: 250 MILLIGRAM?FORM STRENGTH 125 MILLIGRAM ?FREQUENCY TEXT: 1 INTO 2
     Route: 048
     Dates: start: 20130625

REACTIONS (2)
  - Embedded device [Recovered/Resolved]
  - Stoma site infection [Recovered/Resolved]
